FAERS Safety Report 23757577 (Version 1)
Quarter: 2024Q2

REPORT INFORMATION
  Report Type: Spontaneous
  Country: US (occurrence: US)
  Receive Date: 20240418
  Receipt Date: 20240418
  Transmission Date: 20240716
  Serious: No
  Sender: FDA-Public Use
  Company Number: US-TAIHOP-2024-003729

PATIENT
  Age: 70 Year
  Sex: Female
  Weight: 70.31 kg

DRUGS (1)
  1. LONSURF [Suspect]
     Active Substance: TIPIRACIL HYDROCHLORIDE\TRIFLURIDINE
     Indication: Malignant peritoneal neoplasm
     Dosage: FORM STRENGTH: UNKNOWN.?CYCLE 1.
     Route: 048

REACTIONS (1)
  - Off label use [Unknown]
